FAERS Safety Report 5880047-9 (Version None)
Quarter: 2008Q3

REPORT INFORMATION
  Report Type: 
  Country: None (occurrence: None)
  Receive Date: 20080912
  Receipt Date: 20080902
  Transmission Date: 20090109
  Serious: Yes (Disabling)
  Sender: FDA-Public Use
  Company Number: US-WYE-H05824208

PATIENT
  Sex: Female
  Weight: 108.96 kg

DRUGS (4)
  1. PRISTIQ [Suspect]
     Indication: DEPRESSION
     Route: 048
     Dates: start: 20080806, end: 20080808
  2. AVALIDE [Concomitant]
     Indication: HYPERTENSION
     Route: 048
     Dates: start: 20040101
  3. ACETYLSALICYLIC ACID SRT [Concomitant]
     Route: 048
     Dates: start: 19990101
  4. HUMULIN [Concomitant]
     Indication: DIABETES MELLITUS
     Dosage: 70/30,  40 UNITS BID
     Route: 058
     Dates: start: 20050101

REACTIONS (2)
  - BLINDNESS [None]
  - CEREBROVASCULAR ACCIDENT [None]
